FAERS Safety Report 9988772 (Version 2)
Quarter: 2013Q4

REPORT INFORMATION
  Report Type: Spontaneous
  Country: US (occurrence: None)
  Receive Date: 20131009
  Receipt Date: 20131011
  Transmission Date: 20140711
  Serious: Yes (Hospitalization, Other)
  Sender: FDA-Public Use
  Company Number: ADR-2013-01209

PATIENT
  Age: 33 Year
  Sex: Male

DRUGS (2)
  1. LIORESAL [Suspect]
     Indication: MUSCLE SPASTICITY
  2. BOTOX [Suspect]

REACTIONS (5)
  - Gait disturbance [None]
  - Musculoskeletal stiffness [None]
  - Muscle spasms [None]
  - Mental disorder [None]
  - Device occlusion [None]
